FAERS Safety Report 7277465-3 (Version None)
Quarter: 2011Q1

REPORT INFORMATION
  Report Type: 
  Country: None (occurrence: None)
  Receive Date: 20110207
  Receipt Date: 20110127
  Transmission Date: 20110831
  Serious: Yes (Hospitalization, Other)
  Sender: FDA-Public Use
  Company Number: JP-SANOFI-AVENTIS-2010SA075541

PATIENT
  Age: 61 Year
  Sex: Male
  Weight: 75 kg

DRUGS (8)
  1. HUMALOG [Concomitant]
     Route: 065
     Dates: end: 20100623
  2. OLMETEC [Concomitant]
     Route: 065
     Dates: end: 20100623
  3. NATRIX [Suspect]
     Indication: HYPERTENSION
     Route: 048
     Dates: start: 20100605, end: 20100623
  4. CALBLOCK [Concomitant]
     Route: 065
     Dates: end: 20100623
  5. CARDENALIN [Concomitant]
     Route: 065
     Dates: end: 20100623
  6. PERSANTIN [Concomitant]
     Route: 065
     Dates: end: 20100623
  7. EPADEL [Concomitant]
     Route: 065
     Dates: end: 20100623
  8. ALL OTHER THERAPEUTIC PRODUCTS [Concomitant]
     Route: 065
     Dates: end: 20100623

REACTIONS (8)
  - ERYTHEMA [None]
  - INTERVERTEBRAL DISCITIS [None]
  - HYPOAESTHESIA ORAL [None]
  - STEVENS-JOHNSON SYNDROME [None]
  - MUCOSAL EROSION [None]
  - PYREXIA [None]
  - LIP SWELLING [None]
  - CONJUNCTIVITIS [None]
